FAERS Safety Report 7547002-4 (Version None)
Quarter: 2011Q2

REPORT INFORMATION
  Report Type: 
  Country: None (occurrence: None)
  Receive Date: 20110614
  Receipt Date: 20110602
  Transmission Date: 20111010
  Serious: Yes (Other)
  Sender: FDA-Public Use
  Company Number: PHHY2011GB48441

PATIENT
  Age: 29 Year
  Sex: Female

DRUGS (11)
  1. COMBIVIR [Suspect]
     Dosage: UNK
  2. DEXAMETHASONE [Concomitant]
     Dosage: 0.1 %, QID
     Route: 061
  3. ACYCLOVIR [Suspect]
     Dosage: 10 MG/KG, TID
     Route: 042
  4. AMOXICILLIN [Suspect]
     Indication: LOWER RESPIRATORY TRACT INFECTION
     Dosage: UNK
  5. COTRIM [Suspect]
     Dosage: UNK
  6. PREDNISOLONE [Concomitant]
     Dosage: 40 MG, UNK
     Route: 048
  7. ACYCLOVIR [Suspect]
     Dosage: 400 MG, QID
     Route: 048
  8. NEVIRAPINE [Suspect]
     Dosage: UNK
  9. ACYCLOVIR [Suspect]
     Dosage: 800 MG, UNK
  10. FLUCONAZOLE [Suspect]
     Dosage: UNK
  11. FAMCICLOVIR [Suspect]
     Dosage: UNK
     Route: 048

REACTIONS (14)
  - ANGIOEDEMA [None]
  - HAEMOGLOBIN DECREASED [None]
  - CHEST DISCOMFORT [None]
  - VISION BLURRED [None]
  - CD4 LYMPHOCYTES DECREASED [None]
  - SWELLING [None]
  - LOWER RESPIRATORY TRACT INFECTION [None]
  - RASH ERYTHEMATOUS [None]
  - CATARACT [None]
  - RASH MACULO-PAPULAR [None]
  - SKIN DISORDER [None]
  - RETINITIS [None]
  - NECROTISING RETINITIS [None]
  - VISUAL ACUITY REDUCED [None]
